FAERS Safety Report 6772709-6 (Version None)
Quarter: 2010Q2

REPORT INFORMATION
  Report Type: 
  Country: None (occurrence: None)
  Receive Date: 20100616
  Receipt Date: 20100606
  Transmission Date: 20101027
  Serious: Yes (Other)
  Sender: FDA-Public Use
  Company Number: PHHY2010IE37195

PATIENT
  Sex: Female

DRUGS (1)
  1. ZOMETA [Suspect]
     Dosage: UNK

REACTIONS (4)
  - JOINT SWELLING [None]
  - MOBILITY DECREASED [None]
  - SYNOVITIS [None]
  - WEIGHT BEARING DIFFICULTY [None]
